FAERS Safety Report 21176348 (Version 1)
Quarter: 2022Q3

REPORT INFORMATION
  Report Type: Spontaneous
  Country: US (occurrence: US)
  Receive Date: 20220805
  Receipt Date: 20220805
  Transmission Date: 20221026
  Serious: Yes (Other)
  Sender: FDA-Public Use
  Company Number: US-NOVARTISPH-NVSC2022US177146

PATIENT
  Age: 25 Year
  Sex: Male

DRUGS (2)
  1. MYDRIACYL [Suspect]
     Active Substance: TROPICAMIDE
     Indication: Conjunctivitis
     Dosage: 200DRP(100-200DROPS)(3 ML)
     Route: 047
  2. CYCLOPENTOLATE HYDROCHLORIDE [Suspect]
     Active Substance: CYCLOPENTOLATE HYDROCHLORIDE
     Indication: Conjunctivitis
     Dosage: 200 DRP (100-200DROPS)
     Route: 047

REACTIONS (5)
  - Keratitis [Not Recovered/Not Resolved]
  - Mydriasis [Not Recovered/Not Resolved]
  - Sleep disorder [Not Recovered/Not Resolved]
  - Weight decreased [Not Recovered/Not Resolved]
  - Drug abuse [Not Recovered/Not Resolved]
